FAERS Safety Report 13195959 (Version 1)
Quarter: 2017Q1

REPORT INFORMATION
  Report Type: Spontaneous
  Country: JP (occurrence: JP)
  Receive Date: 20170208
  Receipt Date: 20170208
  Transmission Date: 20170428
  Serious: Yes (Death)
  Sender: FDA-Public Use
  Company Number: JP-SUN PHARMACEUTICAL INDUSTRIES LTD-2017R3-132791

PATIENT
  Age: 38 Year
  Sex: Male

DRUGS (9)
  1. CHLORPROMAZINE. [Suspect]
     Active Substance: CHLORPROMAZINE
     Dosage: 5,038MG
     Route: 065
  2. TIMIPERONE [Suspect]
     Active Substance: TIMIPERONE
     Dosage: TRIPLE DOSE OF THE APPROVED ONE ON A DAILY BASIS
     Route: 065
  3. TEGRETOL [Suspect]
     Active Substance: CARBAMAZEPINE
     Indication: PRODUCT USED FOR UNKNOWN INDICATION
     Dosage: UNK
     Route: 048
  4. CHLORPROMAZINE. [Suspect]
     Active Substance: CHLORPROMAZINE
     Indication: PRODUCT USED FOR UNKNOWN INDICATION
     Dosage: 2,879MG (MINIMUM)
     Route: 065
  5. CHLORPROMAZINE. [Suspect]
     Active Substance: CHLORPROMAZINE
     Dosage: 6,359MG (MAXIMUM)
     Route: 065
  6. HALOPERIDOL. [Suspect]
     Active Substance: HALOPERIDOL
     Indication: SCHIZOPHRENIA
     Dosage: UNK, MONTHLY
     Route: 030
  7. HALOPERIDOL. [Suspect]
     Active Substance: HALOPERIDOL
     Dosage: TRIPLE DOSE OF THE APPROVED ONE ON A DAILY BASIS
     Route: 065
  8. HALOPERIDOL. [Suspect]
     Active Substance: HALOPERIDOL
     Indication: PSYCHOTIC DISORDER
     Dosage: UNK
     Route: 065
  9. TIMIPERONE [Suspect]
     Active Substance: TIMIPERONE
     Indication: PSYCHOTIC DISORDER
     Dosage: UNK
     Route: 065

REACTIONS (1)
  - Cardio-respiratory arrest [Fatal]
